FAERS Safety Report 5603249-5 (Version None)
Quarter: 2008Q1

REPORT INFORMATION
  Report Type: 
  Country: None (occurrence: None)
  Receive Date: 20080122
  Receipt Date: 20080108
  Transmission Date: 20080703
  Serious: Yes (Other)
  Sender: FDA-Public Use
  Company Number: VNL_00851_2007

PATIENT
  Age: 70 Year
  Sex: Female

DRUGS (2)
  1. APO-GO (APO-GO - APOMORPHINE HYDROCHLORIDE) [Suspect]
     Indication: PARKINSON'S DISEASE
     Dosage: 2 MG SUBCUTANEOUS
     Route: 058
     Dates: end: 20071001
  2. CILROTON [Concomitant]

REACTIONS (3)
  - AGGRESSION [None]
  - AGITATION [None]
  - HALLUCINATION [None]
